FAERS Safety Report 4883053-6 (Version None)
Quarter: 2006Q1

REPORT INFORMATION
  Report Type: 
  Country: None (occurrence: None)
  Receive Date: 20060118
  Receipt Date: 20060109
  Transmission Date: 20060701
  Serious: Yes (Other)
  Sender: FDA-Public Use
  Company Number: PHEH2006US00775

PATIENT
  Age: 65 Year
  Sex: Female

DRUGS (1)
  1. DESFERAL [Suspect]
     Indication: BLOOD IRON INCREASED
     Dates: start: 20040901, end: 20060101

REACTIONS (3)
  - CHROMATURIA [None]
  - ENCEPHALITIS [None]
  - TUBERCULOSIS [None]
